FAERS Safety Report 7423826-9 (Version None)
Quarter: 2011Q2

REPORT INFORMATION
  Report Type: 
  Country: None (occurrence: None)
  Receive Date: 20110419
  Receipt Date: 20110406
  Transmission Date: 20111010
  Serious: Yes (Other)
  Sender: FDA-Public Use
  Company Number: PHHY2011US26337

PATIENT
  Sex: Female
  Weight: 61.224 kg

DRUGS (9)
  1. TRAMADOL [Concomitant]
     Indication: MIGRAINE
     Dosage: UNK
     Route: 048
     Dates: start: 20070101
  2. GILENYA [Suspect]
     Indication: MULTIPLE SCLEROSIS
     Dosage: 0.5 MG, QD
     Route: 048
     Dates: start: 20101206
  3. FIORICET [Concomitant]
     Indication: MIGRAINE
     Dosage: UNK
     Route: 048
     Dates: start: 20070101
  4. VALTREX [Concomitant]
     Indication: HERPES VIRUS INFECTION
     Dosage: UNK
  5. ZYRTEC [Concomitant]
     Indication: HYPERSENSITIVITY
     Dosage: UNK
     Route: 048
     Dates: start: 20090101
  6. ORTHO TRI-CYCLEN [Concomitant]
     Indication: MENSTRUATION IRREGULAR
     Dosage: 135 MG, UNK
     Dates: start: 20070101
  7. ALLEGRA D 24 HOUR [Concomitant]
     Indication: HYPERSENSITIVITY
     Dosage: 1 DF, QD (QAM)
     Route: 048
     Dates: start: 20090101
  8. FLEXERIL [Concomitant]
     Indication: MUSCLE SPASMS
     Dosage: 10 MG, QHS
     Route: 048
     Dates: start: 20080101
  9. DOXYCYCLINE [Concomitant]
     Indication: PAIN
     Dosage: UNK

REACTIONS (10)
  - DRY SKIN [None]
  - FATIGUE [None]
  - MUSCULOSKELETAL PAIN [None]
  - LIP AND/OR ORAL CAVITY CANCER [None]
  - DRY MOUTH [None]
  - INFLUENZA LIKE ILLNESS [None]
  - ORAL LICHEN PLANUS [None]
  - MALAISE [None]
  - ORAL DISORDER [None]
  - STOMATITIS [None]
